FAERS Safety Report 7635331-5 (Version None)
Quarter: 2011Q3

REPORT INFORMATION
  Report Type: 
  Country: None (occurrence: None)
  Receive Date: 20110726
  Receipt Date: 20110712
  Transmission Date: 20111222
  Serious: Yes (Hospitalization)
  Sender: FDA-Public Use
  Company Number: CA-US-EMD SERONO, INC.-7066608

PATIENT
  Sex: Female

DRUGS (4)
  1. HORMONE REPLACEMENT THERAPY [Concomitant]
  2. CALCIUM CARBONATE [Concomitant]
  3. REBIF [Suspect]
     Indication: MULTIPLE SCLEROSIS
     Dates: start: 20070917
  4. VITAMIN D [Concomitant]

REACTIONS (2)
  - POST PROCEDURAL HAEMORRHAGE [None]
  - UTERINE LEIOMYOMA [None]
